FAERS Safety Report 25883275 (Version 1)
Quarter: 2025Q4

REPORT INFORMATION
  Report Type: Spontaneous
  Country: CN (occurrence: CN)
  Receive Date: 20251006
  Receipt Date: 20251006
  Transmission Date: 20260118
  Serious: Yes (Life-Threatening, Hospitalization, Other)
  Sender: MARKSANS PHARMA LIMITED
  Company Number: CN-MARKSANS PHARMA LIMITED-MPL202500099

PATIENT

DRUGS (3)
  1. METFORMIN HYDROCHLORIDE [Interacting]
     Active Substance: METFORMIN HYDROCHLORIDE
     Indication: Product used for unknown indication
     Dosage: 15 GRAM (APPROX. 30 TABLETS)
     Route: 065
  2. RESERPINE [Interacting]
     Active Substance: RESERPINE
     Indication: Product used for unknown indication
     Dosage: 25 MILLIGRAM (APPROX 100 TABLETS)
     Route: 065
  3. ENALAPRIL MALEATE [Interacting]
     Active Substance: ENALAPRIL MALEATE
     Indication: Product used for unknown indication
     Dosage: 80 MILLIGRAM (APPROX. 16 TABLETS)
     Route: 065

REACTIONS (27)
  - Multiple organ dysfunction syndrome [Unknown]
  - Hypoxic-ischaemic encephalopathy [Unknown]
  - Acute kidney injury [Unknown]
  - Disseminated intravascular coagulation [Unknown]
  - Gastrointestinal haemorrhage [Unknown]
  - Respiratory failure [Unknown]
  - Pulmonary oedema [Unknown]
  - Ileus paralytic [Unknown]
  - Capillary leak syndrome [Unknown]
  - Abdominal compartment syndrome [Unknown]
  - Myocardial injury [Unknown]
  - Altered state of consciousness [Recovered/Resolved]
  - Metabolic acidosis [Recovered/Resolved]
  - Toxicity to various agents [Unknown]
  - Haemoptysis [Unknown]
  - Discoloured vomit [Unknown]
  - Pupillary reflex impaired [Recovered/Resolved]
  - Coma [Recovered/Resolved]
  - Hypertension [Unknown]
  - Mydriasis [Recovered/Resolved]
  - Drug interaction [Unknown]
  - Shock [Unknown]
  - Hypothermia [Unknown]
  - Lactic acidosis [Recovered/Resolved]
  - Hyperlactacidaemia [Recovered/Resolved]
  - Hypoglycaemia [Unknown]
  - Overdose [Unknown]

NARRATIVE: CASE EVENT DATE: 20220628
